FAERS Safety Report 11384969 (Version 1)
Quarter: 2015Q3

REPORT INFORMATION
  Report Type: Spontaneous
  Country: US (occurrence: US)
  Receive Date: 20150811
  Receipt Date: 20150811
  Transmission Date: 20151125
  Serious: Yes (Other)
  Sender: FDA-Public Use
  Company Number: US-ELI_LILLY_AND_COMPANY-US201109004815

PATIENT
  Age: 52 Year
  Sex: Male
  Weight: 81.63 kg

DRUGS (3)
  1. TESTOSTERONE. [Interacting]
     Active Substance: TESTOSTERONE
     Route: 030
  2. CIALIS [Suspect]
     Active Substance: TADALAFIL
     Indication: ERECTILE DYSFUNCTION
     Dosage: 20 MG, PRN
     Route: 048
     Dates: start: 20100920, end: 20110921
  3. CIALIS [Interacting]
     Active Substance: TADALAFIL
     Dosage: 10 MG, UNK
     Dates: end: 20110921

REACTIONS (3)
  - Drug interaction [Recovered/Resolved]
  - Off label use [Unknown]
  - Priapism [Recovered/Resolved]

NARRATIVE: CASE EVENT DATE: 20110920
